FAERS Safety Report 23441237 (Version 1)
Quarter: 2024Q1

REPORT INFORMATION
  Report Type: Spontaneous
  Country: CA (occurrence: None)
  Receive Date: 20240125
  Receipt Date: 20240125
  Transmission Date: 20240410
  Serious: Yes (Hospitalization)
  Sender: FDA-Public Use
  Company Number: 2024A015985

PATIENT
  Age: 46 Year
  Sex: Female

DRUGS (15)
  1. SEROQUEL [Suspect]
     Active Substance: QUETIAPINE FUMARATE
  2. CELEXA [Suspect]
     Active Substance: CITALOPRAM HYDROBROMIDE
  3. BISOPROLOL [Concomitant]
     Active Substance: BISOPROLOL\BISOPROLOL FUMARATE
  4. CENTRUM SELECT ADVANCE 50+ [Concomitant]
  5. CITALOPRAM [Concomitant]
     Active Substance: CITALOPRAM HYDROBROMIDE
  6. FUROSEMIDE [Concomitant]
     Active Substance: FUROSEMIDE
  7. LEVOTHYROXINE [Concomitant]
     Active Substance: LEVOTHYROXINE\LEVOTHYROXINE SODIUM
  8. LORAZEPAM [Concomitant]
     Active Substance: LORAZEPAM
  9. PANTOPRAZOLE [Concomitant]
     Active Substance: PANTOPRAZOLE
  10. POTASSIUM [Concomitant]
     Active Substance: POTASSIUM
  11. PRAZOSIN [Concomitant]
     Active Substance: PRAZOSIN
  12. URSODIOL [Concomitant]
     Active Substance: URSODIOL
  13. VALSARTAN [Concomitant]
     Active Substance: VALSARTAN
  14. VITAMIN D [Concomitant]
     Active Substance: VITAMIN D NOS
  15. WARFARIN [Concomitant]
     Active Substance: WARFARIN

REACTIONS (4)
  - Arrhythmia [Recovered/Resolved]
  - Cardiac arrest [Recovered/Resolved]
  - Endotracheal intubation [Recovered/Resolved]
  - Long QT syndrome [Recovered/Resolved]
